FAERS Safety Report 9851389 (Version 3)
Quarter: 2014Q2

REPORT INFORMATION
  Report Type: Spontaneous
  Country: US (occurrence: US)
  Receive Date: 20140129
  Receipt Date: 20140618
  Transmission Date: 20141212
  Serious: Yes (Other)
  Sender: FDA-Public Use
  Company Number: US-009507513-1401USA008898

PATIENT
  Age: 45 Year
  Sex: Female
  Weight: 79.82 kg

DRUGS (1)
  1. IMPLANON [Suspect]
     Dosage: UNK
     Route: 059
     Dates: end: 20140115

REACTIONS (3)
  - Device breakage [Recovered/Resolved]
  - Incorrect drug administration duration [Unknown]
  - No adverse event [Unknown]
